FAERS Safety Report 19164669 (Version 2)
Quarter: 2021Q2

REPORT INFORMATION
  Report Type: Spontaneous
  Country: US (occurrence: US)
  Receive Date: 20210421
  Receipt Date: 20210504
  Transmission Date: 20210717
  Serious: No
  Sender: FDA-Public Use
  Company Number: US-TEVA-2021-US-1901064

PATIENT
  Sex: Female

DRUGS (1)
  1. CLONAZEPAM. [Suspect]
     Active Substance: CLONAZEPAM
     Dosage: CUTTING THE 2 MG IN HALF
     Route: 048

REACTIONS (4)
  - Wrong technique in product usage process [Unknown]
  - Fear [Unknown]
  - Product prescribing error [Unknown]
  - Allergy to chemicals [Unknown]
